FAERS Safety Report 15838766 (Version 8)
Quarter: 2019Q2

REPORT INFORMATION
  Report Type: Report from Study
  Country: JP (occurrence: JP)
  Receive Date: 20190117
  Receipt Date: 20190625
  Transmission Date: 20190711
  Serious: Yes (Death, Life-Threatening, Hospitalization)
  Sender: FDA-Public Use
  Company Number: JP-EISAI MEDICAL RESEARCH-EC-2019-050625

PATIENT
  Age: 72 Year
  Sex: Female
  Weight: 60 kg

DRUGS (4)
  1. AMLODIPINE [Concomitant]
     Active Substance: AMLODIPINE BESYLATE
  2. THYRADIN S [Concomitant]
     Active Substance: LEVOTHYROXINE SODIUM
  3. LENVIMA [Suspect]
     Active Substance: LENVATINIB
     Indication: HEPATOCELLULAR CARCINOMA
     Route: 048
     Dates: start: 20181016, end: 20181228
  4. LENVIMA [Suspect]
     Active Substance: LENVATINIB
     Route: 048
     Dates: start: 20190104, end: 20190112

REACTIONS (2)
  - Malignant neoplasm progression [Fatal]
  - Vascular pseudoaneurysm ruptured [Recovering/Resolving]

NARRATIVE: CASE EVENT DATE: 2019
